FAERS Safety Report 5762015-0 (Version None)
Quarter: 2008Q2

REPORT INFORMATION
  Report Type: 
  Country: None (occurrence: None)
  Receive Date: 20080603
  Receipt Date: 20080519
  Transmission Date: 20081010
  Serious: Yes (Hospitalization)
  Sender: FDA-Public Use
  Company Number: DSA_31925_2008

PATIENT
  Sex: Male

DRUGS (5)
  1. HERBESSER R (HERBESSER R (TANABE) - DILTIAZEM HYDROCHLORIDE) 200 MG (N [Suspect]
     Indication: HYPERTENSION
     Dosage: (100 MG QD ORAL)
     Route: 048
  2. ZYVOX [Suspect]
     Indication: ENTEROCOLITIS
  3. MICARDIS [Suspect]
     Indication: HYPERTENSION
     Dosage: (20 MG QD ORAL)
     Route: 048
  4. ADALAT CC [Suspect]
     Indication: HYPERTENSION
     Dosage: (20 MG QD ORAL)
     Route: 048
  5. PLETAAL (PLETAAL - CILOSTAZOL) (NOT SPECIFIED) [Suspect]
     Indication: THROMBOSIS PROPHYLAXIS
     Dosage: (DF ORAL)
     Route: 048

REACTIONS (5)
  - CONSTIPATION [None]
  - ENTEROCOLITIS [None]
  - GASTROINTESTINAL NECROSIS [None]
  - NECROSIS ISCHAEMIC [None]
  - PORTAL VENOUS GAS [None]
